FAERS Safety Report 9079631 (Version 1)
Quarter: 2013Q1

REPORT INFORMATION
  Report Type: Spontaneous
  Country: US (occurrence: US)
  Receive Date: 20130215
  Receipt Date: 20130215
  Transmission Date: 20140127
  Serious: Yes (Disabling)
  Sender: FDA-Public Use
  Company Number: US-ASTRAZENECA-2013SE08854

PATIENT
  Age: 61 Year
  Sex: Female
  Weight: 138.8 kg

DRUGS (2)
  1. CRESTOR [Suspect]
     Indication: BLOOD CHOLESTEROL INCREASED
     Dosage: DAILY
     Route: 048
     Dates: end: 2012
  2. AMLODIPINE [Concomitant]
     Indication: HYPERTENSION

REACTIONS (1)
  - Hemiparesis [Recovering/Resolving]
